FAERS Safety Report 15691330 (Version 2)
Quarter: 2019Q1

REPORT INFORMATION
  Report Type: Spontaneous
  Country: JP (occurrence: JP)
  Receive Date: 20181205
  Receipt Date: 20190204
  Transmission Date: 20190417
  Serious: Yes (Other)
  Sender: FDA-Public Use
  Company Number: JP-SA-2018SA328165

PATIENT

DRUGS (1)
  1. OXALIPLATIN. [Suspect]
     Active Substance: OXALIPLATIN
     Dosage: 130 MG/M2, QD
     Route: 041

REACTIONS (3)
  - Neuropathy peripheral [Unknown]
  - Platelet count decreased [Unknown]
  - Cholangitis [Unknown]
